FAERS Safety Report 20888874 (Version 1)
Quarter: 2022Q2

REPORT INFORMATION
  Report Type: Report from Study
  Country: DE (occurrence: DE)
  Receive Date: 20220529
  Receipt Date: 20220529
  Transmission Date: 20220721
  Serious: Yes (Hospitalization)
  Sender: FDA-Public Use
  Company Number: DE-ABBVIE-22K-062-4411964-00

PATIENT
  Sex: Female

DRUGS (2)
  1. CARBIDOPA\LEVODOPA [Suspect]
     Active Substance: CARBIDOPA\LEVODOPA
     Indication: Parkinson^s disease
     Dosage: MD:8.8ML; CRD: 4.8ML/H; CRN:1.9ML/H; ED:2.5ML
     Route: 050
     Dates: start: 20211112
  2. CARBIDOPA\LEVODOPA [Suspect]
     Active Substance: CARBIDOPA\LEVODOPA

REACTIONS (8)
  - Decubitus ulcer [Unknown]
  - General physical health deterioration [Unknown]
  - Enterostomy [Unknown]
  - Enteral nutrition [Unknown]
  - Cachexia [Unknown]
  - Mobility decreased [Unknown]
  - Device defective [Unknown]
  - Asthenia [Unknown]
